FAERS Safety Report 23180607 (Version 1)
Quarter: 2023Q4

REPORT INFORMATION
  Report Type: Spontaneous
  Country: CN (occurrence: None)
  Receive Date: 20231114
  Receipt Date: 20231114
  Transmission Date: 20240110
  Serious: Yes (Hospitalization)
  Sender: FDA-Public Use
  Company Number: CN-ROCHE-3453704

PATIENT
  Age: 61 Year
  Sex: Male
  Weight: 60 kg

DRUGS (5)
  1. TISLELIZUMAB [Suspect]
     Active Substance: TISLELIZUMAB
     Indication: Malignant mediastinal neoplasm
     Route: 041
     Dates: start: 20230815, end: 20230916
  2. SODIUM CHLORIDE [Suspect]
     Active Substance: SODIUM CHLORIDE
     Indication: Malignant mediastinal neoplasm
     Route: 041
     Dates: start: 20230815, end: 20231027
  3. GEMCITABINE HYDROCHLORIDE [Suspect]
     Active Substance: GEMCITABINE HYDROCHLORIDE
     Indication: Malignant mediastinal neoplasm
     Route: 041
     Dates: start: 20230815, end: 20231027
  4. PACLITAXEL [Suspect]
     Active Substance: PACLITAXEL
     Indication: Malignant mediastinal neoplasm
     Route: 041
     Dates: start: 20230815, end: 20231027
  5. AVASTIN [Suspect]
     Active Substance: BEVACIZUMAB
     Indication: Malignant mediastinal neoplasm
     Route: 041
     Dates: start: 20230815, end: 20231027

REACTIONS (3)
  - Off label use [Unknown]
  - Hepatic function abnormal [Recovering/Resolving]
  - Pyrexia [Recovered/Resolved]

NARRATIVE: CASE EVENT DATE: 20230916
